FAERS Safety Report 19571421 (Version 2)
Quarter: 2021Q4

REPORT INFORMATION
  Report Type: Report from Study
  Country: US (occurrence: US)
  Receive Date: 20210715
  Receipt Date: 20211007
  Transmission Date: 20220303
  Serious: No
  Sender: FDA-Public Use
  Company Number: NVSC2021US156842

PATIENT
  Age: 44 Year
  Sex: Female

DRUGS (1)
  1. KESIMPTA [Suspect]
     Active Substance: OFATUMUMAB
     Indication: Product used for unknown indication
     Dosage: UNK
     Route: 065
     Dates: start: 20210706, end: 20210706

REACTIONS (2)
  - Oropharyngeal pain [Recovering/Resolving]
  - Odynophagia [Recovering/Resolving]

NARRATIVE: CASE EVENT DATE: 20210711
